FAERS Safety Report 24197604 (Version 1)
Quarter: 2024Q3

REPORT INFORMATION
  Report Type: Spontaneous
  Country: US (occurrence: US)
  Receive Date: 20240811
  Receipt Date: 20240811
  Transmission Date: 20241016
  Serious: Yes (Death, Life-Threatening, Other)
  Sender: AMGEN
  Company Number: US-AMGEN-USASP2024155016

PATIENT

DRUGS (4)
  1. PREDNISONE [Suspect]
     Active Substance: PREDNISONE
     Indication: Autoimmune hepatitis
     Dosage: 5 MILLIGRAM
     Route: 065
  2. PREDNISONE [Suspect]
     Active Substance: PREDNISONE
     Indication: Cholangitis sclerosing
  3. MYCOPHENOLATE MOFETIL [Concomitant]
     Active Substance: MYCOPHENOLATE MOFETIL
     Indication: Autoimmune hepatitis
     Dosage: 1000 MILLIGRAM, BID
     Route: 065
  4. MYCOPHENOLATE MOFETIL [Concomitant]
     Active Substance: MYCOPHENOLATE MOFETIL
     Indication: Cholangitis sclerosing

REACTIONS (18)
  - Death [Fatal]
  - Chronic kidney disease [Unknown]
  - Transplant rejection [Unknown]
  - Thrombosis [Unknown]
  - Hernia [Unknown]
  - Hypertriglyceridaemia [Unknown]
  - Leukopenia [Unknown]
  - Proteinuria [Unknown]
  - Diabetes mellitus [Unknown]
  - Hyperlipidaemia [Unknown]
  - Postoperative wound infection [Unknown]
  - Hepatic artery thrombosis [Unknown]
  - Portal vein thrombosis [Unknown]
  - Embolism venous [Unknown]
  - Neurotoxicity [Unknown]
  - Liver function test increased [Unknown]
  - Dehiscence [Unknown]
  - Mucosal inflammation [Unknown]
